FAERS Safety Report 13857368 (Version 1)
Quarter: 2017Q3

REPORT INFORMATION
  Report Type: Report from Study
  Country: None (occurrence: CA)
  Receive Date: 20170810
  Receipt Date: 20170810
  Transmission Date: 20171127
  Serious: Yes (Hospitalization)
  Sender: FDA-Public Use
  Company Number: CA-ABBVIE-17P-028-2064860-00

PATIENT
  Sex: Female
  Weight: 68.1 kg

DRUGS (1)
  1. KALETRA [Suspect]
     Active Substance: LOPINAVIR\RITONAVIR
     Indication: ANTIRETROVIRAL THERAPY
     Dosage: UNIT DOSE 200/50 MG?DAILY DOSE: 800/200 MG
     Route: 048
     Dates: start: 20071002

REACTIONS (2)
  - Pneumonia aspiration [Unknown]
  - Dysphagia [Unknown]

NARRATIVE: CASE EVENT DATE: 2017
